FAERS Safety Report 20290544 (Version 4)
Quarter: 2022Q1

REPORT INFORMATION
  Report Type: Spontaneous
  Country: US (occurrence: US)
  Receive Date: 20220104
  Receipt Date: 20220318
  Transmission Date: 20220423
  Serious: Yes (Other)
  Sender: FDA-Public Use
  Company Number: US-PFIZER INC-202101837216

PATIENT
  Age: 64 Year
  Sex: Female

DRUGS (3)
  1. IBRANCE [Suspect]
     Active Substance: PALBOCICLIB
     Dosage: 125 MG
     Dates: start: 20211210
  2. IBRANCE [Suspect]
     Active Substance: PALBOCICLIB
     Dosage: 125 MG
     Dates: start: 20211212
  3. IBRANCE [Suspect]
     Active Substance: PALBOCICLIB
     Dosage: 100 MG
     Dates: start: 20220207, end: 20220211

REACTIONS (14)
  - Neutrophil count decreased [Unknown]
  - Lymphoedema [Not Recovered/Not Resolved]
  - Neoplasm progression [Unknown]
  - White blood cell count decreased [Unknown]
  - Feeling drunk [Unknown]
  - Somnolence [Unknown]
  - Dizziness [Unknown]
  - Muscle spasms [Unknown]
  - Chest discomfort [Recovered/Resolved]
  - Headache [Unknown]
  - Insomnia [Unknown]
  - Fatigue [Unknown]
  - Balance disorder [Unknown]
  - Peripheral swelling [Not Recovered/Not Resolved]

NARRATIVE: CASE EVENT DATE: 20211201
